FAERS Safety Report 13905099 (Version 1)
Quarter: 2017Q3

REPORT INFORMATION
  Report Type: Spontaneous
  Country: US (occurrence: None)
  Receive Date: 20170824
  Receipt Date: 20170824
  Transmission Date: 20171127
  Serious: No
  Sender: FDA-Public Use
  Company Number: None

PATIENT
  Age: 59 Year
  Sex: Female

DRUGS (6)
  1. HCTZ [Concomitant]
     Active Substance: HYDROCHLOROTHIAZIDE
  2. OMEPRAZOLE. [Suspect]
     Active Substance: OMEPRAZOLE
  3. ZOLPIDEM [Concomitant]
     Active Substance: ZOLPIDEM\ZOLPIDEM TARTRATE
  4. HARVONI [Suspect]
     Active Substance: LEDIPASVIR\SOFOSBUVIR
  5. DIAZEPAM. [Concomitant]
     Active Substance: DIAZEPAM
  6. TELMISARTAN. [Concomitant]
     Active Substance: TELMISARTAN

REACTIONS (1)
  - Rash pruritic [None]

NARRATIVE: CASE EVENT DATE: 20170821
